FAERS Safety Report 8199390-6 (Version None)
Quarter: 2012Q1

REPORT INFORMATION
  Report Type: 
  Country: None (occurrence: None)
  Receive Date: 20120309
  Receipt Date: 20120227
  Transmission Date: 20120608
  Serious: Yes (Other)
  Sender: FDA-Public Use
  Company Number: DK-MYLANLABS-2012S1004576

PATIENT
  Sex: Female

DRUGS (2)
  1. METHIMAZOLE [Suspect]
     Dosage: TOTAL DOSE OF 15/17.5MG DAILY AT 32WKS GESTATION
     Route: 064
  2. METHIMAZOLE [Suspect]
     Indication: BASEDOW'S DISEASE
     Dosage: 30MG DAILY AT 8WKS GESTATION; THEN ADJUSTED ACCORDING TO FLUCTUATING HYPERTHYROID SYMPTOMS
     Route: 064

REACTIONS (3)
  - OVARIAN CYST [None]
  - GOITRE [None]
  - MATERNAL EXPOSURE DURING PREGNANCY [None]
